FAERS Safety Report 14470492 (Version 3)
Quarter: 2018Q3

REPORT INFORMATION
  Report Type: Spontaneous
  Country: US (occurrence: US)
  Receive Date: 20180131
  Receipt Date: 20180809
  Transmission Date: 20181010
  Serious: No
  Sender: FDA-Public Use
  Company Number: US-GALDERMA-US17004556

PATIENT
  Age: 52 Year
  Sex: Female

DRUGS (4)
  1. DIFFERIN GEL [Suspect]
     Active Substance: ADAPALENE
     Indication: PRODUCT USED FOR UNKNOWN INDICATION
     Route: 061
  2. DUPIXENT [Concomitant]
     Active Substance: DUPILUMAB
     Indication: DERMATITIS ATOPIC
  3. DESOWEN [Suspect]
     Active Substance: DESONIDE
     Indication: DERMATITIS ATOPIC
     Dosage: 0.05%
     Route: 061
     Dates: start: 20170410, end: 20170410
  4. CETAPHIL BABY GENTLE WASH AND SHAMPOO [Concomitant]
     Active Substance: COSMETICS
     Indication: DERMATITIS ATOPIC
     Route: 061

REACTIONS (9)
  - Pain of skin [Recovered/Resolved]
  - Poor quality drug administered [Recovered/Resolved]
  - Rash vesicular [Unknown]
  - Condition aggravated [Unknown]
  - Drug ineffective for unapproved indication [Unknown]
  - Seborrhoea [Recovered/Resolved]
  - Skin fissures [Recovered/Resolved]
  - Scar [Unknown]
  - Blister rupture [Unknown]
